FAERS Safety Report 13942296 (Version 1)
Quarter: 2017Q3

REPORT INFORMATION
  Report Type: Report from Study
  Country: MX (occurrence: MX)
  Receive Date: 20170907
  Receipt Date: 20170907
  Transmission Date: 20171127
  Serious: Yes (Hospitalization, Other)
  Sender: FDA-Public Use
  Company Number: MX-SHIRE-MX201720133

PATIENT

DRUGS (3)
  1. MORPHINE [Concomitant]
     Active Substance: MORPHINE
     Indication: PAIN
  2. ELAPRASE [Suspect]
     Active Substance: IDURSULFASE
     Indication: MUCOPOLYSACCHARIDOSIS II
     Dosage: 2 VIALS IV IN 100 ML OF NACL FOR 4 HOURS, 1X/WEEK
     Route: 042
     Dates: start: 20141101
  3. PARACETAMOL [Concomitant]
     Active Substance: ACETAMINOPHEN
     Indication: PYREXIA

REACTIONS (11)
  - Abdominal distension [Unknown]
  - Mood altered [Unknown]
  - Hypovolaemic shock [Unknown]
  - Pyrexia [Not Recovered/Not Resolved]
  - Haemorrhage [Unknown]
  - Haemorrhagic necrotic pancreatitis [Recovering/Resolving]
  - Pancreatic necrosis [Unknown]
  - Facial pain [Unknown]
  - Blood creatinine increased [Unknown]
  - Renal failure [Unknown]
  - Complication associated with device [Unknown]

NARRATIVE: CASE EVENT DATE: 20170808
